FAERS Safety Report 13425418 (Version 1)
Quarter: 2017Q2

REPORT INFORMATION
  Report Type: Spontaneous
  Country: PL (occurrence: PL)
  Receive Date: 20170411
  Receipt Date: 20170411
  Transmission Date: 20170830
  Serious: Yes (Other)
  Sender: FDA-Public Use
  Company Number: PL-AMGEN-POLSP2017053012

PATIENT
  Age: 18 Year
  Sex: Female

DRUGS (1)
  1. PROCORALAN [Suspect]
     Active Substance: IVABRADINE
     Indication: PRESYNCOPE
     Dosage: 10 MG, QD
     Route: 048
     Dates: start: 2006

REACTIONS (4)
  - Photophobia [Recovered/Resolved]
  - Photopsia [Recovered/Resolved]
  - Visual acuity reduced [Recovered/Resolved]
  - Loss of personal independence in daily activities [Recovered/Resolved]

NARRATIVE: CASE EVENT DATE: 2006
